FAERS Safety Report 5124763-5 (Version None)
Quarter: 2006Q4

REPORT INFORMATION
  Report Type: 
  Country: None (occurrence: None)
  Receive Date: 20061006
  Receipt Date: 20061002
  Transmission Date: 20070319
  Serious: Yes (Other)
  Sender: FDA-Public Use
  Company Number: HQWYE540204OCT06

PATIENT
  Sex: Male

DRUGS (1)
  1. ADVIL COLD AND SINUS [Suspect]
     Dosage: ORAL
     Route: 048

REACTIONS (3)
  - HEPATITIS [None]
  - JAUNDICE CHOLESTATIC [None]
  - POOR QUALITY DRUG ADMINISTERED [None]
